FAERS Safety Report 9753031 (Version 5)
Quarter: 2017Q2

REPORT INFORMATION
  Report Type: Report from Study
  Country: KR (occurrence: KR)
  Receive Date: 20131213
  Receipt Date: 20170420
  Transmission Date: 20170830
  Serious: Yes (Death, Hospitalization)
  Sender: FDA-Public Use
  Company Number: KR-ROCHE-1311498

PATIENT
  Age: 58 Year
  Sex: Male
  Weight: 66.2 kg

DRUGS (25)
  1. PANBURON [Concomitant]
     Indication: DYSPEPSIA
     Route: 065
     Dates: start: 20120104, end: 20131127
  2. ZYPREXA [Concomitant]
     Active Substance: OLANZAPINE
     Indication: ANXIETY
     Route: 065
     Dates: start: 20131204, end: 20131204
  3. PERAMIFLU [Concomitant]
     Active Substance: PERAMIVIR
     Indication: INFLUENZA
     Route: 065
     Dates: start: 20131127, end: 20131128
  4. PENIRAMIN [Concomitant]
     Indication: INFUSION RELATED REACTION
     Route: 065
     Dates: start: 20130724, end: 20131120
  5. ZANTAC [Concomitant]
     Active Substance: RANITIDINE HYDROCHLORIDE
     Indication: GASTRITIS
     Route: 065
     Dates: start: 20131129, end: 20131203
  6. VANCOMYCIN [Concomitant]
     Active Substance: VANCOMYCIN
     Indication: INFECTION
     Route: 065
     Dates: start: 20131204, end: 20131204
  7. TARGIN [Concomitant]
     Active Substance: NALOXONE HYDROCHLORIDE\OXYCODONE HYDROCHLORIDE
     Indication: FATIGUE
     Route: 065
     Dates: start: 20120430, end: 20131203
  8. MAGNESIUM OXIDE. [Concomitant]
     Active Substance: MAGNESIUM OXIDE
     Indication: CONSTIPATION
     Route: 065
     Dates: start: 20120601, end: 20131127
  9. HEXAMEDINE [Concomitant]
     Indication: MOUTH HAEMORRHAGE
     Route: 065
     Dates: start: 20131120, end: 20131127
  10. MEROPEN [Concomitant]
     Active Substance: MEROPENEM
     Indication: INFECTION
     Route: 065
     Dates: start: 20131205, end: 20131205
  11. RED BLOOD CELLS [Concomitant]
     Active Substance: HUMAN RED BLOOD CELL
     Indication: ANAEMIA
     Route: 065
     Dates: start: 20131127, end: 20131127
  12. ZITHROMAX [Concomitant]
     Active Substance: AZITHROMYCIN DIHYDRATE
     Indication: INFECTION
     Route: 065
     Dates: start: 20131129, end: 20131201
  13. URSA [Concomitant]
     Indication: ASPARTATE AMINOTRANSFERASE INCREASED
     Route: 065
     Dates: start: 20130821, end: 20131127
  14. URSA [Concomitant]
     Indication: ALANINE AMINOTRANSFERASE INCREASED
     Route: 065
     Dates: start: 20131129, end: 20131203
  15. STILNOX [Concomitant]
     Active Substance: ZOLPIDEM TARTRATE
     Indication: INSOMNIA
     Route: 065
     Dates: start: 20131202, end: 20131202
  16. TRASTUZUMAB EMTANSINE [Suspect]
     Active Substance: ADO-TRASTUZUMAB EMTANSINE
     Indication: GASTRIC CANCER
     Dosage: MOST RECENT DOSE PRIOR TO THE SAE WAS 20/NOV/2013
     Route: 042
     Dates: start: 20130724
  17. MAGNESIUM OXIDE. [Concomitant]
     Active Substance: MAGNESIUM OXIDE
     Route: 065
     Dates: start: 20131129, end: 20131203
  18. MEVALOTIN [Concomitant]
     Active Substance: PRAVASTATIN SODIUM
     Route: 065
     Dates: start: 20131031, end: 20131127
  19. TRANEXAMIC ACID. [Concomitant]
     Active Substance: TRANEXAMIC ACID
     Route: 065
     Dates: start: 20131128, end: 20131204
  20. SEPTRIN [Concomitant]
     Active Substance: SULFAMETHOXAZOLE\TRIMETHOPRIM
     Indication: INFECTION
     Route: 065
     Dates: start: 20131129, end: 20131203
  21. MORPHINE HCL [Concomitant]
     Active Substance: MORPHINE HYDROCHLORIDE
     Indication: HEADACHE
     Route: 065
     Dates: start: 20131204, end: 20131205
  22. PHOSTEN [Concomitant]
     Indication: HYPOPHOSPHATAEMIA
     Route: 065
     Dates: start: 20131201, end: 20131203
  23. MEVALOTIN [Concomitant]
     Active Substance: PRAVASTATIN SODIUM
     Indication: BLOOD CHOLESTEROL INCREASED
     Route: 065
     Dates: start: 20131002, end: 20131030
  24. TRANEXAMIC ACID. [Concomitant]
     Active Substance: TRANEXAMIC ACID
     Indication: MOUTH HAEMORRHAGE
     Route: 065
     Dates: start: 20131113, end: 20131127
  25. TRIDOL [Concomitant]
     Active Substance: TRAMADOL HYDROCHLORIDE
     Indication: HEADACHE
     Route: 065
     Dates: start: 20131202, end: 20131202

REACTIONS (1)
  - Pulmonary alveolar haemorrhage [Fatal]

NARRATIVE: CASE EVENT DATE: 20131127
